FAERS Safety Report 5341474-1 (Version None)
Quarter: 2007Q2

REPORT INFORMATION
  Report Type: 
  Country: None (occurrence: None)
  Receive Date: 20070601
  Receipt Date: 20070524
  Transmission Date: 20071010
  Serious: Yes (Other)
  Sender: FDA-Public Use
  Company Number: PHFR2007GB01037

PATIENT
  Age: 24 Year
  Sex: Male
  Weight: 103 kg

DRUGS (3)
  1. GLEEVEC [Suspect]
     Indication: CHRONIC MYELOID LEUKAEMIA
     Dosage: 400 MG/DAY
     Route: 048
     Dates: start: 20061031
  2. GLEEVEC [Suspect]
     Dosage: 400MG / DAY
     Route: 048
     Dates: start: 20061031
  3. CODEINE PHOSPHATE AND ACETAMINOPHEN [Concomitant]
     Indication: PAIN
     Dosage: 30 MG, QID
     Route: 048

REACTIONS (6)
  - BREAST DISCOMFORT [None]
  - EJACULATION FAILURE [None]
  - ERECTILE DYSFUNCTION [None]
  - GYNAECOMASTIA [None]
  - HYPOGONADISM MALE [None]
  - TESTICULAR DISORDER [None]
